FAERS Safety Report 6355214-0 (Version None)
Quarter: 2009Q3

REPORT INFORMATION
  Report Type: 
  Country: None (occurrence: None)
  Receive Date: 20090914
  Receipt Date: 20090902
  Transmission Date: 20100115
  Serious: Yes (Other)
  Sender: FDA-Public Use
  Company Number: JP-PFIZER INC-2009262772

PATIENT
  Age: 68 Year

DRUGS (1)
  1. ZOLOFT [Suspect]
     Dosage: UNK MG, UNK
     Route: 048

REACTIONS (1)
  - PARKINSON'S DISEASE [None]
